FAERS Safety Report 19956238 (Version 1)
Quarter: 2021Q4

REPORT INFORMATION
  Report Type: Spontaneous
  Country: US (occurrence: US)
  Receive Date: 20211014
  Receipt Date: 20211014
  Transmission Date: 20220303
  Serious: No
  Sender: FDA-Public Use
  Company Number: US-PFIZER INC-202100912544

PATIENT
  Age: 73 Year
  Sex: Female
  Weight: 61.23 kg

DRUGS (2)
  1. HYDROCORTISONE ACETATE [Suspect]
     Active Substance: HYDROCORTISONE ACETATE
     Indication: Pruritus
     Dosage: UNK
  2. PETROLEUM JELLY [Suspect]
     Active Substance: PETROLATUM
     Dosage: UNK

REACTIONS (1)
  - Drug ineffective [Unknown]
